FAERS Safety Report 16981557 (Version 1)
Quarter: 2019Q4

REPORT INFORMATION
  Report Type: Spontaneous
  Country: US (occurrence: US)
  Receive Date: 20191101
  Receipt Date: 20191101
  Transmission Date: 20200122
  Serious: No
  Sender: FDA-Public Use
  Company Number: US-CELLTRION INC.-2019US022865

PATIENT

DRUGS (1)
  1. INFLECTRA [Suspect]
     Active Substance: INFLIXIMAB-DYYB
     Indication: PRODUCT USE IN UNAPPROVED INDICATION
     Dosage: 100MG, ASSUMING EVERY SIX WEEKS (WAS SUPPOSED TO HAVE THE FIRST TREATMENT ON 09 JUL 2019. HE WAS UNA

REACTIONS (1)
  - Unevaluable event [Unknown]

NARRATIVE: CASE EVENT DATE: 20190709
